FAERS Safety Report 7483464-9 (Version None)
Quarter: 2011Q2

REPORT INFORMATION
  Report Type: 
  Country: None (occurrence: None)
  Receive Date: 20110517
  Receipt Date: 20110505
  Transmission Date: 20111010
  Serious: Yes (Other)
  Sender: FDA-Public Use
  Company Number: CA-JNJFOC-20110502321

PATIENT
  Age: 82 Year
  Sex: Female

DRUGS (7)
  1. GALANTAMINE HYDROBROMIDE [Suspect]
     Indication: DEMENTIA ALZHEIMER'S TYPE
     Route: 048
     Dates: start: 20060301
  2. RISPERDAL [Concomitant]
     Indication: PRODUCT USED FOR UNKNOWN INDICATION
     Dosage: 0.25 MG MORNING AND 0.5MG AT BED TIME
     Route: 065
  3. MEMANTINE HYDROCHLORIDE [Concomitant]
     Indication: PRODUCT USED FOR UNKNOWN INDICATION
     Route: 048
  4. GALANTAMINE HYDROBROMIDE [Suspect]
     Dosage: FOR 1 MONTH
     Route: 048
     Dates: start: 20040901
  5. RABEPRAZOLE SODIUM [Concomitant]
     Indication: PRODUCT USED FOR UNKNOWN INDICATION
     Route: 048
  6. TRAZODONE HCL [Concomitant]
     Indication: PRODUCT USED FOR UNKNOWN INDICATION
     Route: 065
  7. GALANTAMINE HYDROBROMIDE [Suspect]
     Route: 048
     Dates: start: 20051128

REACTIONS (9)
  - APHASIA [None]
  - DRUG DOSE OMISSION [None]
  - ARTHROPATHY [None]
  - DEMENTIA ALZHEIMER'S TYPE [None]
  - RESTLESSNESS [None]
  - HALLUCINATION [None]
  - GAIT DISTURBANCE [None]
  - COGNITIVE DISORDER [None]
  - MOANING [None]
